FAERS Safety Report 9452632 (Version 1)
Quarter: 2013Q3

REPORT INFORMATION
  Report Type: Spontaneous
  Country: FR (occurrence: FR)
  Receive Date: 20130812
  Receipt Date: 20130812
  Transmission Date: 20140515
  Serious: Yes (Hospitalization)
  Sender: FDA-Public Use
  Company Number: FR-ROCHE-1259668

PATIENT
  Age: 40 Year
  Sex: Female

DRUGS (5)
  1. BACTRIM [Suspect]
     Indication: PRODUCT USED FOR UNKNOWN INDICATION
     Route: 048
     Dates: start: 2007, end: 20130704
  2. ROVALCYTE [Suspect]
     Indication: PRODUCT USED FOR UNKNOWN INDICATION
     Route: 065
     Dates: start: 20130621, end: 20130712
  3. TRUVADA [Concomitant]
     Dosage: 200 MG / 245 MG
     Route: 065
     Dates: start: 200601
  4. INTELENCE [Concomitant]
     Route: 048
     Dates: start: 2012
  5. SUBUTEX [Concomitant]

REACTIONS (1)
  - Renal colic [Recovered/Resolved]
